FAERS Safety Report 8494838-1 (Version None)
Quarter: 2012Q3

REPORT INFORMATION
  Report Type: 
  Country: None (occurrence: None)
  Receive Date: 20120709
  Receipt Date: 20120629
  Transmission Date: 20120928
  Serious: Yes (Hospitalization)
  Sender: FDA-Public Use
  Company Number: GB-JNJFOC-20120513993

PATIENT
  Age: 56 Year
  Sex: Male

DRUGS (7)
  1. DOVOBET [Concomitant]
     Dates: start: 20050905
  2. FOLIC ACID [Concomitant]
     Dates: start: 20080531
  3. INFLIXIMAB, RECOMBINANT [Suspect]
     Indication: PSORIASIS
     Route: 042
     Dates: start: 20100209, end: 20111215
  4. DIPROSALIC [Concomitant]
     Dates: start: 20100215
  5. EUMOVATE [Concomitant]
     Dates: start: 20040115
  6. FELODIPINE [Concomitant]
     Dates: start: 20040809
  7. ALPHOSYL [Concomitant]
     Dates: start: 20040115

REACTIONS (2)
  - STAPHYLOCOCCAL SKIN INFECTION [None]
  - PSORIASIS [None]
